FAERS Safety Report 4336011-4 (Version None)
Quarter: 2004Q2

REPORT INFORMATION
  Report Type: 
  Country: None (occurrence: None)
  Receive Date: 20040406
  Receipt Date: 20040326
  Transmission Date: 20050107
  Serious: Yes (Hospitalization)
  Sender: FDA-Public Use
  Company Number: 2004206394FR

PATIENT
  Age: 32 Year
  Sex: Female

DRUGS (6)
  1. CYTOTEC [Suspect]
     Dosage: 200 UG/DAY, ORAL
     Route: 048
     Dates: end: 19950912
  2. PROZAC [Suspect]
     Dosage: 20 MG/DAY, ORAL
     Route: 048
     Dates: end: 19950912
  3. MYOLASTAN(TETRAZEPAM) [Suspect]
     Dosage: 50 MG/DAY, ORAL
     Route: 048
     Dates: end: 19950910
  4. KETOPROFEN [Suspect]
     Dosage: 300 MG/DAY, ORAL
     Route: 048
     Dates: end: 19950912
  5. LAMALINE(BELLADONNA EXTRACT) [Suspect]
     Dosage: 3 DF, ORAL
     Route: 048
     Dates: end: 19950910
  6. PLAQUENIL [Suspect]
     Dosage: 66 MG/DAY, ORAL
     Route: 048
     Dates: start: 19950906, end: 19950910

REACTIONS (3)
  - SYSTEMIC LUPUS ERYTHEMATOSUS [None]
  - TOXIC EPIDERMAL NECROLYSIS [None]
  - TOXIC SKIN ERUPTION [None]
